FAERS Safety Report 7634714-7 (Version None)
Quarter: 2011Q3

REPORT INFORMATION
  Report Type: 
  Country: None (occurrence: None)
  Receive Date: 20110725
  Receipt Date: 20110718
  Transmission Date: 20111222
  Serious: Yes (Other)
  Sender: FDA-Public Use
  Company Number: US-BRISTOL-MYERS SQUIBB COMPANY-15908973

PATIENT
  Age: 30 Year
  Sex: Female

DRUGS (4)
  1. HALDOL [Concomitant]
  2. ABILIFY [Suspect]
     Indication: POST-TRAUMATIC STRESS DISORDER
     Dates: start: 20101001
  3. ARTANE [Concomitant]
  4. ABILIFY [Suspect]
     Indication: SCHIZOAFFECTIVE DISORDER
     Dates: start: 20101001

REACTIONS (2)
  - NEPHROLITHIASIS [None]
  - RENAL DISORDER [None]
